FAERS Safety Report 4526249-5 (Version None)
Quarter: 2004Q4

REPORT INFORMATION
  Report Type: 
  Country: None (occurrence: None)
  Receive Date: 20041214
  Receipt Date: 20041112
  Transmission Date: 20050328
  Serious: Yes (Death, Hospitalization)
  Sender: FDA-Public Use
  Company Number: PHBS2004FR15396

PATIENT
  Age: 73 Year
  Sex: Male

DRUGS (1)
  1. DESERNIL [Suspect]
     Indication: FACIAL PAIN

REACTIONS (21)
  - CARDIAC PACEMAKER INSERTION [None]
  - CARDIAC PACEMAKER REMOVAL [None]
  - CARDIO-RESPIRATORY ARREST [None]
  - CAROTID ARTERY ATHEROMA [None]
  - COMPUTERISED TOMOGRAM ABNORMAL [None]
  - CREATININE RENAL CLEARANCE DECREASED [None]
  - CYANOSIS [None]
  - DYSPNOEA [None]
  - EJECTION FRACTION DECREASED [None]
  - FEMORAL ARTERY OCCLUSION [None]
  - FIBROSIS [None]
  - JUGULAR VEIN DISTENSION [None]
  - MITRAL VALVE INCOMPETENCE [None]
  - MULTI-ORGAN FAILURE [None]
  - RENAL IMPAIRMENT [None]
  - SUPERIOR VENA CAVAL OCCLUSION [None]
  - SURGERY [None]
  - SWELLING FACE [None]
  - VASCULAR BYPASS GRAFT [None]
  - VEIN DISORDER [None]
  - VENOUS OPERATION [None]
